FAERS Safety Report 16939574 (Version 2)
Quarter: 2019Q4

REPORT INFORMATION
  Report Type: Spontaneous
  Country: AT (occurrence: AT)
  Receive Date: 20191021
  Receipt Date: 20191219
  Transmission Date: 20200122
  Serious: Yes (Other)
  Sender: FDA-Public Use
  Company Number: AT-TEVA-2019-AT-1126485

PATIENT
  Age: 73 Year
  Sex: Male

DRUGS (5)
  1. THROMBO ASS [Concomitant]
     Active Substance: ASPIRIN
     Indication: ATRIAL FIBRILLATION
     Route: 065
  2. BENDAMUSTINE HYDROCHLORIDE. [Suspect]
     Active Substance: BENDAMUSTINE HYDROCHLORIDE
     Indication: B-CELL LYMPHOMA
     Dosage: 90 MG/M2, CYCLIC (DAY 1 + 2) [28 DAYS]
     Route: 042
  3. GAZYVARO [Suspect]
     Active Substance: OBINUTUZUMAB
     Indication: B-CELL LYMPHOMA
     Dosage: 1000 MG, CYCLIC (CYCLE 1: DAY 1, 8, 15, FROM CYCLE 2 ON: DAY 1 ONLY) [28 DAYS]
     Route: 042
  4. G-CSF [Concomitant]
     Active Substance: GRANULOCYTE COLONY-STIMULATING FACTOR NOS
     Indication: PRODUCT USED FOR UNKNOWN INDICATION
     Route: 065
  5. GAZYVARO [Suspect]
     Active Substance: OBINUTUZUMAB
     Dosage: 1000 MG, CYCLIC  (2 MONTH)
     Route: 042
     Dates: start: 201801

REACTIONS (3)
  - Rotator cuff syndrome [Unknown]
  - Prescribed underdose [Unknown]
  - Thrombocytopenia [Unknown]
